FAERS Safety Report 16037473 (Version 2)
Quarter: 2019Q1

REPORT INFORMATION
  Report Type: Report from Study
  Country: US (occurrence: US)
  Receive Date: 20190305
  Receipt Date: 20190307
  Transmission Date: 20190418
  Serious: Yes (Hospitalization, Other)
  Sender: FDA-Public Use
  Company Number: US-GILEAD-2019-0394567

PATIENT
  Age: 79 Year
  Sex: Male

DRUGS (17)
  1. FLUOROURACIL. [Concomitant]
     Active Substance: FLUOROURACIL
  2. PANTOPRAZOLE [Concomitant]
     Active Substance: PANTOPRAZOLE
  3. INDOMETHACIN [INDOMETACIN] [Concomitant]
     Active Substance: INDOMETHACIN
  4. SODIUM CHLORIDE. [Concomitant]
     Active Substance: SODIUM CHLORIDE
  5. ROSUVASTATIN. [Concomitant]
     Active Substance: ROSUVASTATIN
  6. CULTURELLE [Concomitant]
     Active Substance: LACTOBACILLUS RHAMNOSUS
  7. PULMICORT TURBUHALER [Concomitant]
     Active Substance: BUDESONIDE
  8. PARI [Concomitant]
  9. IPRATROPIUM [Concomitant]
     Active Substance: IPRATROPIUM
  10. CREON [Concomitant]
     Active Substance: PANCRELIPASE AMYLASE\PANCRELIPASE LIPASE\PANCRELIPASE PROTEASE
  11. AZTREONAM LYSINE [Suspect]
     Active Substance: AZTREONAM LYSINE
     Indication: CYSTIC FIBROSIS
     Dosage: 75 MG, TID; EVERY OTHER MONTH
     Route: 055
     Dates: start: 20140315
  12. FERROUS SULFATE. [Concomitant]
     Active Substance: FERROUS SULFATE
  13. TAMSULOSIN [Concomitant]
     Active Substance: TAMSULOSIN
  14. DEKASOFT [Concomitant]
  15. CLONIDINE. [Concomitant]
     Active Substance: CLONIDINE
  16. FINASTERIDE. [Concomitant]
     Active Substance: FINASTERIDE
  17. COMBIVENT [Concomitant]
     Active Substance: ALBUTEROL SULFATE\IPRATROPIUM BROMIDE

REACTIONS (2)
  - Influenza [Unknown]
  - Cystic fibrosis [Unknown]

NARRATIVE: CASE EVENT DATE: 201902
